FAERS Safety Report 15281967 (Version 2)
Quarter: 2018Q3

REPORT INFORMATION
  Report Type: Report from Study
  Country: MX (occurrence: MX)
  Receive Date: 20180815
  Receipt Date: 20180816
  Transmission Date: 20181010
  Serious: Yes (Other)
  Sender: FDA-Public Use
  Company Number: PHHY2018MX044549

PATIENT
  Sex: Male
  Weight: 42 kg

DRUGS (1)
  1. RITALINE [Suspect]
     Active Substance: METHYLPHENIDATE HYDROCHLORIDE
     Indication: ATTENTION DEFICIT/HYPERACTIVITY DISORDER
     Dosage: 1 DF, QD (DAILY 1/2 IN THE MORNING AND 1/2 IN THE NIGHT)
     Route: 048
     Dates: start: 201605, end: 201706

REACTIONS (5)
  - Weight increased [Unknown]
  - Irritability [Unknown]
  - Condition aggravated [Unknown]
  - Attention deficit/hyperactivity disorder [Unknown]
  - Stress [Unknown]
